FAERS Safety Report 13508808 (Version 2)
Quarter: 2017Q4

REPORT INFORMATION
  Report Type: Spontaneous
  Country: IT (occurrence: IT)
  Receive Date: 20170503
  Receipt Date: 20171030
  Transmission Date: 20180320
  Serious: Yes (Other)
  Sender: FDA-Public Use
  Company Number: IT-TEVA-763519ACC

PATIENT
  Sex: Female

DRUGS (3)
  1. EXEMESTANE. [Concomitant]
     Active Substance: EXEMESTANE
     Route: 065
     Dates: start: 201212
  2. EVEROLIMUS. [Suspect]
     Active Substance: EVEROLIMUS
     Indication: OESTROGEN RECEPTOR POSITIVE BREAST CANCER
     Route: 065
     Dates: start: 201212
  3. ZOLEDRONIC ACID [Suspect]
     Active Substance: ZOLEDRONIC ACID
     Indication: OESTROGEN RECEPTOR POSITIVE BREAST CANCER
     Route: 050
     Dates: start: 201406

REACTIONS (3)
  - Osteonecrosis of jaw [Recovering/Resolving]
  - Metastases to bone [Unknown]
  - Malignant neoplasm progression [Unknown]
